FAERS Safety Report 8171260-9 (Version None)
Quarter: 2012Q1

REPORT INFORMATION
  Report Type: 
  Country: None (occurrence: None)
  Receive Date: 20120228
  Receipt Date: 20120213
  Transmission Date: 20120608
  Serious: Yes (Other)
  Sender: FDA-Public Use
  Company Number: GB-WATSON-2012-02874

PATIENT
  Age: 54 Year
  Sex: Female
  Weight: 68.95 kg

DRUGS (5)
  1. TOPIRAMATE [Suspect]
     Indication: PRODUCT USED FOR UNKNOWN INDICATION
     Dosage: UNK
     Route: 065
     Dates: start: 20120112, end: 20120113
  2. SUMATRIPTAN [Concomitant]
     Dosage: UNK
     Route: 065
     Dates: start: 20120109, end: 20120115
  3. SUMATRIPTAN [Concomitant]
     Indication: PRODUCT USED FOR UNKNOWN INDICATION
     Dosage: UNK
     Route: 065
     Dates: start: 20111130, end: 20111206
  4. DEXAMETHASONE [Concomitant]
     Indication: PRODUCT USED FOR UNKNOWN INDICATION
     Dosage: UNK
     Route: 065
     Dates: start: 20111118, end: 20111128
  5. SUMATRIPTAN [Concomitant]
     Dosage: UNK
     Route: 065
     Dates: start: 20111219, end: 20111225

REACTIONS (5)
  - SLOW SPEECH [None]
  - COGNITIVE DISORDER [None]
  - AFFECT LABILITY [None]
  - TEARFULNESS [None]
  - DYSPHEMIA [None]
